FAERS Safety Report 9117692 (Version 1)
Quarter: 2013Q1

REPORT INFORMATION
  Report Type: Spontaneous
  Country: US (occurrence: US)
  Receive Date: 20130225
  Receipt Date: 20130225
  Transmission Date: 20140127
  Serious: No
  Sender: FDA-Public Use
  Company Number: US-BIOGENIDEC-2013BI016321

PATIENT
  Sex: Male

DRUGS (6)
  1. TYSABRI [Suspect]
     Indication: MULTIPLE SCLEROSIS
     Route: 042
     Dates: start: 20070412
  2. AVONEX [Concomitant]
     Route: 030
  3. AVONEX [Concomitant]
     Route: 030
  4. NEURONTIN [Concomitant]
     Indication: NEURALGIA
  5. ZOLOFT [Concomitant]
     Indication: DEPRESSION
  6. ZOLOFT [Concomitant]
     Indication: INSOMNIA

REACTIONS (4)
  - Asthenia [Recovered/Resolved]
  - Gait disturbance [Recovered/Resolved]
  - Fall [Recovered/Resolved]
  - Arthralgia [Not Recovered/Not Resolved]
